FAERS Safety Report 10063802 (Version 2)
Quarter: 2014Q2

REPORT INFORMATION
  Report Type: Spontaneous
  Country: US (occurrence: US)
  Receive Date: 20140408
  Receipt Date: 20140414
  Transmission Date: 20141212
  Serious: Yes (Life-Threatening, Hospitalization, Other)
  Sender: FDA-Public Use
  Company Number: US-009507513-1403USA013741

PATIENT
  Age: 32 Year
  Sex: Male

DRUGS (10)
  1. ORGATRAX [Suspect]
     Indication: ANXIETY
     Dosage: 50 MG, PRN
  2. CHLORPROMAZINE [Suspect]
     Dosage: 100 MG, BID
  3. HALOPERIDOL [Suspect]
     Dosage: 2 MG, QD
  4. HALOPERIDOL [Suspect]
     Dosage: 5 MG, QPM
  5. BENZTROPINE MESYLATE [Suspect]
     Dosage: 2 MG, BID
     Route: 048
  6. ACETAMINOPHEN [Concomitant]
     Dosage: UNK, Q6H
     Route: 048
  7. CITALOPRAM [Concomitant]
     Dosage: 40 MG, QD
  8. VALPROIC ACID [Concomitant]
     Dosage: 500 MG, QD
  9. LEVOTHYROXINE SODIUM [Concomitant]
     Dosage: 100 MICROGRAM, QD
  10. PSYLLIUM HUSK [Concomitant]

REACTIONS (1)
  - Neuroleptic malignant syndrome [Recovering/Resolving]
